FAERS Safety Report 15575244 (Version 2)
Quarter: 2019Q1

REPORT INFORMATION
  Report Type: Report from Study
  Country: CO (occurrence: CO)
  Receive Date: 20181101
  Receipt Date: 20190321
  Transmission Date: 20190417
  Serious: Yes (Hospitalization)
  Sender: FDA-Public Use
  Company Number: CO-JNJFOC-20181043973

PATIENT
  Age: 70 Year
  Sex: Male

DRUGS (5)
  1. XARELTO [Suspect]
     Active Substance: RIVAROXABAN
     Indication: ATRIAL FIBRILLATION
     Route: 048
     Dates: start: 20170425
  2. ESOMEPRAZOLE. [Concomitant]
     Active Substance: ESOMEPRAZOLE MAGNESIUM
     Indication: GASTRITIS
     Route: 065
  3. PHENYTOIN SODIUM. [Concomitant]
     Active Substance: PHENYTOIN SODIUM
     Route: 065
  4. METOPROLOL. [Concomitant]
     Active Substance: METOPROLOL
     Route: 065
  5. PROPAFENONE HYDROCHLORIDE. [Concomitant]
     Active Substance: PROPAFENONE HYDROCHLORIDE
     Route: 065

REACTIONS (5)
  - Head injury [Unknown]
  - Diverticulum [Not Recovered/Not Resolved]
  - Syncope [Unknown]
  - Cardiac pacemaker insertion [Not Recovered/Not Resolved]
  - Anal haemorrhage [Unknown]

NARRATIVE: CASE EVENT DATE: 20180904
